FAERS Safety Report 15880873 (Version 1)
Quarter: 2019Q1

REPORT INFORMATION
  Report Type: Spontaneous
  Country: US (occurrence: US)
  Receive Date: 20190128
  Receipt Date: 20190128
  Transmission Date: 20190417
  Serious: No
  Sender: FDA-Public Use
  Company Number: None

PATIENT

DRUGS (1)
  1. IRBESARTAN 300MG [Suspect]
     Active Substance: IRBESARTAN

REACTIONS (1)
  - Headache [None]
